FAERS Safety Report 9255705 (Version 2)
Quarter: 2013Q4

REPORT INFORMATION
  Report Type: Spontaneous
  Country: GB (occurrence: GB)
  Receive Date: 20130425
  Receipt Date: 20131025
  Transmission Date: 20140711
  Serious: Yes (Death, Hospitalization)
  Sender: FDA-Public Use
  Company Number: PHHY2013GB040287

PATIENT
  Age: 76 Year
  Sex: Female
  Weight: 57 kg

DRUGS (6)
  1. DOXYCYCLINE [Suspect]
     Indication: LOWER RESPIRATORY TRACT INFECTION
     Dosage: 100 MG, UNK
     Route: 048
     Dates: start: 20130305, end: 20130306
  2. BISOPROLOL [Concomitant]
     Dosage: 1.25 MG, UNK
  3. IPRATROPIUM [Concomitant]
     Dosage: UNK UKN, UNK, LONGSTANDING
     Route: 055
  4. SALBUTAMOL [Concomitant]
     Dosage: UNK UKN, UNK, LONG STANDING
     Route: 055
  5. OMEPRAZOLE [Concomitant]
     Dosage: 20 MG, LONGSTANDING
     Route: 048
  6. FOLIC ACID [Concomitant]
     Dosage: 5 MG, LONGSTANDING
     Route: 048

REACTIONS (3)
  - Hepatic function abnormal [Fatal]
  - Renal failure [Not Recovered/Not Resolved]
  - Jaundice [Not Recovered/Not Resolved]
